FAERS Safety Report 21099267 (Version 1)
Quarter: 2022Q3

REPORT INFORMATION
  Report Type: Report from Study
  Country: AU (occurrence: AU)
  Receive Date: 20220719
  Receipt Date: 20220719
  Transmission Date: 20221027
  Serious: Yes (Hospitalization)
  Sender: FDA-Public Use
  Company Number: AU-ABBVIE-22K-008-4472104-00

PATIENT
  Age: 89 Year
  Sex: Male
  Weight: 85 kg

DRUGS (1)
  1. LEUPROLIDE ACETATE [Suspect]
     Active Substance: LEUPROLIDE ACETATE
     Indication: Product used for unknown indication
     Route: 030
     Dates: start: 20210809

REACTIONS (1)
  - Syncope [Recovering/Resolving]

NARRATIVE: CASE EVENT DATE: 20220714
